FAERS Safety Report 9003942 (Version 1)
Quarter: 2013Q1

REPORT INFORMATION
  Report Type: Spontaneous
  Country: US (occurrence: US)
  Receive Date: 20130108
  Receipt Date: 20130108
  Transmission Date: 20140127
  Serious: Yes (Hospitalization)
  Sender: FDA-Public Use
  Company Number: US-PERRIGO-12US011230

PATIENT
  Sex: Female

DRUGS (3)
  1. IBUPROFEN 200MG 517 [Suspect]
     Indication: PRODUCT USED FOR UNKNOWN INDICATION
     Dosage: UNKNOWN, UNKNOWN
     Route: 065
  2. IBUPROFEN 200MG-DIPHENHYDRAMINE CITRATE 38 MG 050 [Suspect]
     Indication: PRODUCT USED FOR UNKNOWN INDICATION
     Dosage: UNKNOWN, UNKNOWN
     Route: 065
  3. DIPHENHYDRAMINE HYDROCHLORIDE [Suspect]
     Indication: PRODUCT USED FOR UNKNOWN INDICATION
     Dosage: UNKNOWN, UNKNOWN
     Route: 065

REACTIONS (1)
  - Adverse event [Unknown]
